FAERS Safety Report 13355046 (Version 2)
Quarter: 2017Q2

REPORT INFORMATION
  Report Type: Spontaneous
  Country: IE (occurrence: IE)
  Receive Date: 20170321
  Receipt Date: 20170501
  Transmission Date: 20170830
  Serious: Yes (Life-Threatening, Hospitalization, Other)
  Sender: FDA-Public Use
  Company Number: IE-TAKEDA-2017TUS005916

PATIENT
  Sex: Male
  Weight: 70 kg

DRUGS (1)
  1. ENTYVIO [Suspect]
     Active Substance: VEDOLIZUMAB
     Indication: CROHN^S DISEASE
     Dosage: 300 MG, UNK
     Route: 042
     Dates: start: 2016, end: 2017

REACTIONS (3)
  - Malaise [Recovered/Resolved]
  - Sepsis [Recovered/Resolved]
  - Unresponsive to stimuli [Recovered/Resolved]
